FAERS Safety Report 20964632 (Version 1)
Quarter: 2022Q2

REPORT INFORMATION
  Report Type: Spontaneous
  Country: CA (occurrence: CA)
  Receive Date: 20220615
  Receipt Date: 20220615
  Transmission Date: 20220721
  Serious: Yes (Hospitalization, Other)
  Sender: FDA-Public Use
  Company Number: CA-ASSERTIO THERAPEUTICS, INC.-CA-2022AST000112

PATIENT

DRUGS (7)
  1. CAMBIA [Suspect]
     Active Substance: DICLOFENAC POTASSIUM
     Indication: Pain
     Dosage: 75 MILLIGRAM
     Route: 048
  2. IBUPROFEN [Suspect]
     Active Substance: IBUPROFEN
     Indication: Product used for unknown indication
     Dosage: 500 MILLIGRAM, BID
     Route: 048
  3. INFLIXIMAB [Suspect]
     Active Substance: INFLIXIMAB
     Indication: Ankylosing spondylitis
     Dosage: 400 MILLIGRAM
     Route: 042
  4. METHOTREXATE [Suspect]
     Active Substance: METHOTREXATE
     Indication: Product used for unknown indication
     Dosage: 20 MILLIGRAM, QW
     Route: 065
  5. ONDANSETRON [Suspect]
     Active Substance: ONDANSETRON
     Indication: Product used for unknown indication
     Dosage: UNK
     Route: 048
  6. PREDNISONE [Suspect]
     Active Substance: PREDNISONE
     Indication: Product used for unknown indication
     Dosage: UNK
     Route: 042
  7. TYLENOL [Concomitant]
     Active Substance: ACETAMINOPHEN
     Indication: Product used for unknown indication
     Dosage: UNK
     Route: 065

REACTIONS (17)
  - Body temperature increased [Unknown]
  - Hypoaesthesia [Unknown]
  - Illness [Unknown]
  - Loss of consciousness [Unknown]
  - Panic disorder [Unknown]
  - Shock [Unknown]
  - Blood pressure decreased [Unknown]
  - Erythema [Unknown]
  - Malaise [Unknown]
  - Nausea [Unknown]
  - Paraesthesia [Unknown]
  - Peripheral swelling [Unknown]
  - Pruritus [Unknown]
  - Swelling [Unknown]
  - Swelling face [Unknown]
  - Tremor [Unknown]
  - Urticaria [Unknown]
